FAERS Safety Report 22993476 (Version 3)
Quarter: 2024Q1

REPORT INFORMATION
  Report Type: Other
  Country: CN (occurrence: None)
  Receive Date: 20230927
  Receipt Date: 20240105
  Transmission Date: 20240409
  Serious: Yes (Hospitalization)
  Sender: FDA-Public Use
  Company Number: CN-ROCHE-3429005

PATIENT
  Age: 59 Year
  Sex: Male

DRUGS (4)
  1. GAVRETO [Suspect]
     Active Substance: PRALSETINIB
     Indication: Lung neoplasm malignant
     Dosage: 100 MG, 4 CAPSULES
     Route: 048
     Dates: start: 20221120
  2. GAVRETO [Suspect]
     Active Substance: PRALSETINIB
     Dosage: 100 MG, 3 CAPSULES
     Route: 048
  3. GAVRETO [Suspect]
     Active Substance: PRALSETINIB
     Dosage: 1 CAPSULE
     Route: 048
     Dates: start: 20230214
  4. GAVRETO [Suspect]
     Active Substance: PRALSETINIB
     Route: 048
     Dates: start: 2023

REACTIONS (6)
  - Herpes zoster [Recovering/Resolving]
  - Hypertension [Recovering/Resolving]
  - Constipation [Unknown]
  - Transaminases increased [Recovering/Resolving]
  - White blood cell count decreased [Not Recovered/Not Resolved]
  - Hypoaesthesia [Recovering/Resolving]
